FAERS Safety Report 23251469 (Version 1)
Quarter: 2023Q4

REPORT INFORMATION
  Report Type: Spontaneous
  Country: CA (occurrence: CA)
  Receive Date: 20231201
  Receipt Date: 20231201
  Transmission Date: 20240110
  Serious: Yes (Other)
  Sender: FDA-Public Use
  Company Number: CA-MYLANLABS-2023M1127335

PATIENT
  Age: 31 Year
  Sex: Female

DRUGS (6)
  1. ADALIMUMAB [Suspect]
     Active Substance: ADALIMUMAB\ISOPROPYL ALCOHOL
     Indication: Colitis ulcerative
     Dosage: 40 MILLIGRAM
     Route: 058
  2. CLOTRIMAZOLE [Suspect]
     Active Substance: CLOTRIMAZOLE
     Indication: Product used for unknown indication
     Dosage: UNK
     Route: 065
  3. HYDROCORTISONE [Concomitant]
     Active Substance: HYDROCORTISONE
     Dosage: UNK
     Route: 065
  4. IRON [Concomitant]
     Active Substance: IRON
     Dosage: UNK
     Route: 065
  5. NIACIN [Concomitant]
     Active Substance: NIACIN
     Dosage: UNK
     Route: 065
  6. PREDNISONE [Concomitant]
     Active Substance: PREDNISONE
     Dosage: UNK
     Route: 065

REACTIONS (12)
  - COVID-19 [Unknown]
  - Dysstasia [Unknown]
  - Neck pain [Unknown]
  - Somnolence [Unknown]
  - Stress [Unknown]
  - Blood pressure increased [Unknown]
  - Loss of consciousness [Unknown]
  - Muscle spasms [Unknown]
  - Migraine [Unknown]
  - Dizziness [Unknown]
  - Headache [Unknown]
  - Abdominal pain upper [Unknown]
